FAERS Safety Report 7576223-X (Version None)
Quarter: 2011Q2

REPORT INFORMATION
  Report Type: 
  Country: None (occurrence: None)
  Receive Date: 20110628
  Receipt Date: 20110128
  Transmission Date: 20111010
  Serious: Yes (Other)
  Sender: FDA-Public Use
  Company Number: US-BAYER-201021528NA

PATIENT
  Age: 31 Year
  Sex: Female
  Weight: 79.365 kg

DRUGS (7)
  1. PROPOXYPHENE HYDROCHLORIDE [Concomitant]
  2. YASMIN [Suspect]
     Indication: CONTRACEPTION
     Dosage: UNK UNK, QD
     Route: 048
     Dates: start: 20080101, end: 20080501
  3. NSAID'S [Concomitant]
  4. TEA, GREEN [Concomitant]
  5. DARVOCET [Concomitant]
  6. ORLISTAT [Concomitant]
     Indication: WEIGHT DECREASED
  7. AMOXICILLIN [Concomitant]

REACTIONS (5)
  - CHOLELITHIASIS [None]
  - MIGRAINE [None]
  - GALLBLADDER INJURY [None]
  - ABDOMINAL PAIN [None]
  - CHOLECYSTITIS ACUTE [None]
